FAERS Safety Report 8320291-4 (Version None)
Quarter: 2012Q2

REPORT INFORMATION
  Report Type: 
  Country: None (occurrence: None)
  Receive Date: 20120426
  Receipt Date: 20120426
  Transmission Date: 20120825
  Serious: Yes (Disabling)
  Sender: FDA-Public Use
  Company Number: None

PATIENT
  Age: 59 Year
  Sex: Male
  Weight: 81.6475 kg

DRUGS (1)
  1. NUCYNTA [Suspect]
     Indication: BREAKTHROUGH PAIN
     Dosage: 50 MG 4 X A DAY ORAL
     Route: 048
     Dates: start: 20120316, end: 20120414

REACTIONS (3)
  - ALOPECIA [None]
  - VISUAL IMPAIRMENT [None]
  - HEARING IMPAIRED [None]
